FAERS Safety Report 7986377 (Version 4)
Quarter: 2013Q4

REPORT INFORMATION
  Report Type: Spontaneous
  Country: US (occurrence: US)
  Receive Date: 20110610
  Receipt Date: 20131107
  Transmission Date: 20140711
  Serious: Yes (Other)
  Sender: FDA-Public Use
  Company Number: US-ROCHE-780885

PATIENT
  Age: 23 Year
  Sex: Male
  Weight: 115.7 kg

DRUGS (1)
  1. ACCUTANE [Suspect]
     Indication: ACNE
     Route: 065
     Dates: start: 19990728, end: 200005

REACTIONS (8)
  - Colitis ulcerative [Unknown]
  - Inflammatory bowel disease [Unknown]
  - Intestinal haemorrhage [Unknown]
  - Anal fissure [Unknown]
  - Large intestine polyp [Unknown]
  - Injury [Unknown]
  - Ingrowing nail [Unknown]
  - Cellulitis [Unknown]
